FAERS Safety Report 16197247 (Version 1)
Quarter: 2019Q2

REPORT INFORMATION
  Report Type: Report from Study
  Country: None (occurrence: US)
  Receive Date: 20190415
  Receipt Date: 20190415
  Transmission Date: 20190711
  Serious: Yes (Hospitalization, Other)
  Sender: FDA-Public Use
  Company Number: US-ABBVIE-19K-163-2739535-00

PATIENT
  Age: 62 Year
  Sex: Female

DRUGS (1)
  1. HUMIRA [Suspect]
     Active Substance: ADALIMUMAB
     Indication: RHEUMATOID ARTHRITIS
     Route: 058

REACTIONS (7)
  - Hepatic failure [Unknown]
  - Abdominal distension [Unknown]
  - Fluid intake reduced [Unknown]
  - Throat tightness [Unknown]
  - Retching [Unknown]
  - Gastrointestinal bacterial infection [Unknown]
  - Hypophagia [Unknown]

NARRATIVE: CASE EVENT DATE: 201812
